FAERS Safety Report 20187676 (Version 1)
Quarter: 2021Q4

REPORT INFORMATION
  Report Type: Spontaneous
  Country: US (occurrence: US)
  Receive Date: 20211215
  Receipt Date: 20211215
  Transmission Date: 20220303
  Serious: No
  Sender: FDA-Public Use
  Company Number: US-GILEAD-2021-0560496

PATIENT
  Sex: Female

DRUGS (2)
  1. SOFOSBUVIR\VELPATASVIR [Suspect]
     Active Substance: SOFOSBUVIR\VELPATASVIR
     Indication: Chronic hepatitis C
     Dosage: Q1 DOSAGE FORM, QD
     Route: 048
  2. OMEPRAZOLE [Concomitant]
     Active Substance: OMEPRAZOLE

REACTIONS (3)
  - Fatigue [Unknown]
  - Bronchitis [Not Recovered/Not Resolved]
  - Chronic obstructive pulmonary disease [Not Recovered/Not Resolved]
